FAERS Safety Report 7657921-6 (Version None)
Quarter: 2011Q3

REPORT INFORMATION
  Report Type: 
  Country: None (occurrence: None)
  Receive Date: 20110805
  Receipt Date: 20090218
  Transmission Date: 20111222
  Serious: No
  Sender: FDA-Public Use
  Company Number: 2009BI005332

PATIENT
  Sex: Female

DRUGS (1)
  1. TYSABRI [Suspect]
     Indication: MULTIPLE SCLEROSIS
     Route: 042
     Dates: start: 20090109, end: 20090213

REACTIONS (10)
  - HYPERSENSITIVITY [None]
  - FEELING COLD [None]
  - ANXIETY [None]
  - BALANCE DISORDER [None]
  - MALAISE [None]
  - BLOOD PRESSURE INCREASED [None]
  - MULTIPLE SCLEROSIS [None]
  - DYSPNOEA [None]
  - BRONCHITIS [None]
  - CHILLS [None]
